FAERS Safety Report 25552417 (Version 1)
Quarter: 2025Q3

REPORT INFORMATION
  Report Type: Spontaneous
  Country: GB (occurrence: GB)
  Receive Date: 20250715
  Receipt Date: 20250715
  Transmission Date: 20251020
  Serious: Yes (Other)
  Sender: NOVO NORDISK
  Company Number: GB-MHRA-TPP5308050C10261543YC1749036299862

PATIENT
  Age: 72 Year
  Sex: Female
  Weight: 71 kg

DRUGS (9)
  1. DOXYCYCLINE [Concomitant]
     Active Substance: DOXYCYCLINE
     Indication: Ill-defined disorder
     Dates: start: 20250501, end: 20250506
  2. FERROUS FUMARATE [Concomitant]
     Active Substance: FERROUS FUMARATE
     Indication: Ill-defined disorder
     Dates: start: 20240903
  3. AMLODIPINE [Concomitant]
     Active Substance: AMLODIPINE BESYLATE
     Indication: Ill-defined disorder
     Dates: start: 20250116
  4. BENDROFLUMETHIAZIDE [Concomitant]
     Active Substance: BENDROFLUMETHIAZIDE
     Indication: Ill-defined disorder
     Dates: start: 20250116
  5. LEVOTHYROXINE [Concomitant]
     Active Substance: LEVOTHYROXINE
     Indication: Ill-defined disorder
     Dates: start: 20250116
  6. METFORMIN [Concomitant]
     Active Substance: METFORMIN HYDROCHLORIDE
     Indication: Ill-defined disorder
     Dates: start: 20250116
  7. MESALAMINE [Concomitant]
     Active Substance: MESALAMINE
     Indication: Ill-defined disorder
     Dates: start: 20250116
  8. LINAGLIPTIN [Concomitant]
     Active Substance: LINAGLIPTIN
     Indication: Ill-defined disorder
     Dates: start: 20250227, end: 20250318
  9. RYBELSUS [Suspect]
     Active Substance: SEMAGLUTIDE
     Indication: Ill-defined disorder
     Dosage: 3 MG, QD
     Dates: start: 20250508, end: 20250604

REACTIONS (1)
  - Gastrointestinal disorder [Recovered/Resolved]

NARRATIVE: CASE EVENT DATE: 20250604
